FAERS Safety Report 4490393-1 (Version None)
Quarter: 2004Q4

REPORT INFORMATION
  Report Type: 
  Country: None (occurrence: None)
  Receive Date: 20041027
  Receipt Date: 20041019
  Transmission Date: 20050328
  Serious: Yes (Hospitalization, Other)
  Sender: FDA-Public Use
  Company Number: 2004240238US

PATIENT
  Age: 86 Year
  Sex: Female
  Weight: 55.8 kg

DRUGS (3)
  1. BEXTRA [Suspect]
     Indication: NERVE INJURY
     Dosage: 20 MG, QD, ORAL
     Route: 048
     Dates: start: 20040101
  2. EXTRA STRENGTH TYLENOL [Concomitant]
  3. ANTIHYPERTENSIVES [Concomitant]

REACTIONS (5)
  - ABASIA [None]
  - CEREBROVASCULAR ACCIDENT [None]
  - DRUG INEFFECTIVE [None]
  - HALLUCINATION [None]
  - HYPOTENSION [None]
